FAERS Safety Report 25877513 (Version 2)
Quarter: 2025Q4

REPORT INFORMATION
  Report Type: Spontaneous
  Country: US (occurrence: US)
  Receive Date: 20251003
  Receipt Date: 20251006
  Transmission Date: 20260119
  Serious: Yes (Death, Life-Threatening, Other)
  Sender: PFIZER
  Company Number: US-PFIZER INC-202500195744

PATIENT
  Age: 69 Year
  Sex: Male

DRUGS (1)
  1. EPINEPHRINE [Suspect]
     Active Substance: EPINEPHRINE
     Indication: Anaphylactic reaction
     Dosage: 500 UG
     Route: 030

REACTIONS (3)
  - Cardiac arrest [Fatal]
  - Kounis syndrome [Unknown]
  - Off label use [Unknown]
